FAERS Safety Report 14767412 (Version 5)
Quarter: 2018Q4

REPORT INFORMATION
  Report Type: Spontaneous
  Country: US (occurrence: US)
  Receive Date: 20180417
  Receipt Date: 20181129
  Transmission Date: 20190204
  Serious: No
  Sender: FDA-Public Use
  Company Number: US-PFIZER INC-2018156338

PATIENT
  Age: 57 Year
  Sex: Female

DRUGS (7)
  1. HERCEPTIN [Concomitant]
     Active Substance: TRASTUZUMAB
  2. TAXOTERE [Concomitant]
     Active Substance: DOCETAXEL
     Dosage: UNK
     Dates: start: 201604, end: 201704
  3. ARIMIDEX [Concomitant]
     Active Substance: ANASTROZOLE
     Dosage: UNK
     Dates: start: 201604, end: 201704
  4. DOCEFREZ [Concomitant]
     Active Substance: DOCETAXEL ANHYDROUS
     Dosage: UNK
     Dates: start: 201604, end: 201704
  5. CYTOXAN [Concomitant]
     Active Substance: CYCLOPHOSPHAMIDE
  6. DOCETAXEL. [Suspect]
     Active Substance: DOCETAXEL
     Indication: BREAST CANCER
     Dosage: UNK
     Dates: start: 20160401, end: 20170401
  7. PERJETA [Concomitant]
     Active Substance: PERTUZUMAB

REACTIONS (5)
  - Alopecia [Not Recovered/Not Resolved]
  - Hair disorder [Not Recovered/Not Resolved]
  - Hair colour changes [Not Recovered/Not Resolved]
  - Hair texture abnormal [Not Recovered/Not Resolved]
  - Madarosis [Not Recovered/Not Resolved]
